FAERS Safety Report 7479588-2 (Version None)
Quarter: 2011Q2

REPORT INFORMATION
  Report Type: 
  Country: None (occurrence: None)
  Receive Date: 20110513
  Receipt Date: 20110509
  Transmission Date: 20111010
  Serious: Yes (Death)
  Sender: FDA-Public Use
  Company Number: GB-PFIZER INC-2011099470

PATIENT
  Age: 76 Year

DRUGS (1)
  1. SOMATROPIN RDNA [Suspect]

REACTIONS (1)
  - DEATH [None]
